FAERS Safety Report 8499288 (Version 4)
Quarter: 2012Q4

REPORT INFORMATION
  Report Type: 
  Country: US (occurrence: US)
  Receive Date: 20120409
  Receipt Date: 20120928
  Transmission Date: 20130627
  Serious: No
  Sender: FDA-Public Use
  Company Number: US-ELI_LILLY_AND_COMPANY-US201204000363

PATIENT
  Age: 57 Year
  Sex: Female

DRUGS (2)
  1. FORTEO [Suspect]
     Indication: OSTEOPOROSIS
     Dosage: UNK, qd
  2. FORTEO [Suspect]
     Dosage: UNK, every other third day

REACTIONS (5)
  - Arthralgia [Recovering/Resolving]
  - Vertigo [Unknown]
  - Medication error [Not Recovered/Not Resolved]
  - Pain [Unknown]
  - Movement disorder [Unknown]
